FAERS Safety Report 17502034 (Version 1)
Quarter: 2020Q1

REPORT INFORMATION
  Report Type: Spontaneous
  Country: US (occurrence: US)
  Receive Date: 20200305
  Receipt Date: 20200305
  Transmission Date: 20200409
  Serious: No
  Sender: FDA-Public Use
  Company Number: US-JNJFOC-20200243697

PATIENT
  Age: 68 Year
  Sex: Female
  Weight: 72.64 kg

DRUGS (1)
  1. STELARA [Suspect]
     Active Substance: USTEKINUMAB
     Indication: COLITIS ULCERATIVE
     Route: 042
     Dates: start: 20200206

REACTIONS (12)
  - Asthenia [Recovered/Resolved]
  - Nightmare [Recovered/Resolved]
  - Amnesia [Recovered/Resolved]
  - Back pain [Recovered/Resolved]
  - Psychogenic seizure [Recovered/Resolved]
  - Pain [Recovered/Resolved]
  - Pain in extremity [Unknown]
  - Fear [Recovered/Resolved]
  - Tremor [Recovered/Resolved]
  - Malaise [Recovered/Resolved]
  - Aphasia [Recovered/Resolved]
  - Crying [Recovered/Resolved]

NARRATIVE: CASE EVENT DATE: 20200207
